FAERS Safety Report 9383895 (Version 1)
Quarter: 2013Q3

REPORT INFORMATION
  Report Type: Spontaneous
  Country: US (occurrence: US)
  Receive Date: 20130705
  Receipt Date: 20130705
  Transmission Date: 20140515
  Serious: No
  Sender: FDA-Public Use
  Company Number: US-009507513-1306USA012006

PATIENT
  Age: 78 Year
  Sex: Female

DRUGS (1)
  1. ZOCOR [Suspect]
     Dosage: UNK
     Route: 048
     Dates: end: 201305

REACTIONS (1)
  - Movement disorder [Recovered/Resolved]
